FAERS Safety Report 11352377 (Version 1)
Quarter: 2015Q3

REPORT INFORMATION
  Report Type: Spontaneous
  Country: US (occurrence: US)
  Receive Date: 20150807
  Receipt Date: 20150807
  Transmission Date: 20151125
  Serious: No
  Sender: FDA-Public Use
  Company Number: US-JNJFOC-20150513940

PATIENT
  Age: 56 Year
  Sex: Female
  Weight: 113.4 kg

DRUGS (3)
  1. MENS ROGAINE EXTRA STRENGTH [Suspect]
     Active Substance: MINOXIDIL
     Route: 061
  2. MENS ROGAINE EXTRA STRENGTH [Suspect]
     Active Substance: MINOXIDIL
     Indication: ALOPECIA
     Dosage: ONCE IN THE MORNING
     Route: 061
     Dates: start: 201410, end: 201501
  3. TOPICAL STEROID [Concomitant]
     Indication: ALOPECIA
     Dosage: ONCE IN THE MORNING
     Route: 065

REACTIONS (2)
  - Wrong patient received medication [Unknown]
  - Hair growth abnormal [Recovered/Resolved]
